FAERS Safety Report 5689207-3 (Version None)
Quarter: 2008Q1

REPORT INFORMATION
  Report Type: 
  Country: None (occurrence: None)
  Receive Date: 20080331
  Receipt Date: 20080327
  Transmission Date: 20080703
  Serious: Yes (Life-Threatening, Hospitalization, Other)
  Sender: FDA-Public Use
  Company Number: US-BRISTOL-MYERS SQUIBB COMPANY-14012637

PATIENT
  Age: 82 Year
  Sex: Female
  Weight: 61 kg

DRUGS (11)
  1. IXEMPRA KIT [Suspect]
     Indication: BREAST CANCER METASTATIC
     Route: 042
     Dates: start: 20071211, end: 20080101
  2. BENADRYL [Concomitant]
     Indication: PREMEDICATION
  3. PEPCID [Concomitant]
     Indication: PREMEDICATION
  4. DURAGESIC-100 [Concomitant]
     Route: 062
  5. STEROIDS [Concomitant]
     Indication: PREMEDICATION
  6. SYNTHROID [Concomitant]
  7. COREG [Concomitant]
  8. LASIX [Concomitant]
  9. BENAZEPRIL HCL [Concomitant]
  10. INSPRA [Concomitant]
  11. VITAMIN E [Concomitant]

REACTIONS (10)
  - ACUTE RESPIRATORY FAILURE [None]
  - BLOOD THYROID STIMULATING HORMONE INCREASED [None]
  - CARDIAC FAILURE CONGESTIVE [None]
  - CARDIOMYOPATHY [None]
  - COLITIS ISCHAEMIC [None]
  - HYPERSENSITIVITY [None]
  - HYPOTENSION [None]
  - LIVER FUNCTION TEST ABNORMAL [None]
  - METABOLIC ACIDOSIS [None]
  - PANCYTOPENIA [None]
